FAERS Safety Report 24241889 (Version 3)
Quarter: 2024Q3

REPORT INFORMATION
  Report Type: Spontaneous
  Country: US (occurrence: US)
  Receive Date: 20240823
  Receipt Date: 20240926
  Transmission Date: 20241017
  Serious: Yes (Death, Hospitalization, Other)
  Sender: UROGEN PHARMA
  Company Number: US-UROGEN PHARMA LTD.-2024-UGN-000117

PATIENT

DRUGS (3)
  1. JELMYTO [Suspect]
     Active Substance: MITOMYCIN
     Indication: Transitional cell cancer of the renal pelvis and ureter
     Dosage: 15 CUBIC CENTIMETRE (INSTILLATION)
     Route: 065
     Dates: start: 20240802, end: 20240802
  2. JELMYTO [Suspect]
     Active Substance: MITOMYCIN
     Dosage: 15 CUBIC CENTIMETRE (INSTILLATION)
     Route: 065
     Dates: start: 20240809, end: 20240809
  3. JELMYTO [Suspect]
     Active Substance: MITOMYCIN
     Dosage: 15 CUBIC CENTIMETRE (INSTILLATION)
     Route: 065
     Dates: start: 20240823, end: 20240823

REACTIONS (4)
  - Death [Fatal]
  - Inflammation [Unknown]
  - Pyelonephritis [Unknown]
  - Flank pain [Unknown]

NARRATIVE: CASE EVENT DATE: 20240101
